FAERS Safety Report 21603757 (Version 6)
Quarter: 2023Q1

REPORT INFORMATION
  Report Type: Spontaneous
  Country: US (occurrence: US)
  Receive Date: 20221116
  Receipt Date: 20230310
  Transmission Date: 20230417
  Serious: Yes (Life-Threatening, Hospitalization, Other)
  Sender: FDA-Public Use
  Company Number: US-009507513-2211USA003802

PATIENT
  Sex: Male
  Weight: 63.039 kg

DRUGS (7)
  1. KEYTRUDA [Suspect]
     Active Substance: PEMBROLIZUMAB
     Indication: Oesophageal adenocarcinoma stage IV
     Dosage: 200 MILLIGRAM, EVERY 3 WEEKS
     Route: 042
     Dates: start: 20220215
  2. OXALIPLATIN [Suspect]
     Active Substance: OXALIPLATIN
     Indication: Oesophageal adenocarcinoma stage IV
     Dosage: 190 MILLIGRAM, UNK
     Route: 042
     Dates: start: 20220215, end: 20220706
  3. TRASTUZUMAB [Suspect]
     Active Substance: TRASTUZUMAB
     Indication: Oesophageal adenocarcinoma stage IV
     Dosage: 460 MILLIGRAM, EVERY 3 WEEKS
     Route: 042
     Dates: start: 20220215, end: 20220928
  4. CAPECITABINE [Suspect]
     Active Substance: CAPECITABINE
     Indication: Oesophageal adenocarcinoma stage IV
     Dosage: 3 TABLETS (1500 MG TOTAL) BY MOUTH (TWO) TIMES A DAY, TAKE ON DAYS 1-14, FOLLOWED BY 7 DAYS OFF, EVE
     Route: 048
     Dates: start: 20220215, end: 2022
  5. AMLODIPINE [Concomitant]
     Active Substance: AMLODIPINE BESYLATE
     Dosage: 2.5 MILLIGRAM, QD
  6. LIPITOR [Concomitant]
     Active Substance: ATORVASTATIN CALCIUM
     Dosage: 1 TABLET (10 MG TOTAL) BY MOUTH 1 (ONE) TIME EACH DAY
     Route: 048
  7. PRILOSEC [Concomitant]
     Active Substance: OMEPRAZOLE MAGNESIUM
     Dosage: 20 MILLIGRAM, QD

REACTIONS (27)
  - Pleural effusion [Recovering/Resolving]
  - Acute respiratory failure [Unknown]
  - Septic shock [Unknown]
  - Hypoxia [Unknown]
  - Malignant neoplasm progression [Unknown]
  - Hypokalaemia [Unknown]
  - Neuropathy peripheral [Not Recovered/Not Resolved]
  - Anaphylactic reaction [Unknown]
  - Pneumonitis [Recovered/Resolved]
  - Hypotension [Unknown]
  - Bronchospasm [Unknown]
  - Dysphagia [Unknown]
  - Tachycardia [Unknown]
  - Lymphadenopathy mediastinal [Unknown]
  - Viral infection [Recovering/Resolving]
  - Pain [Unknown]
  - Musculoskeletal discomfort [Recovering/Resolving]
  - Muscle spasms [Recovering/Resolving]
  - Insomnia [Unknown]
  - Vomiting [Recovered/Resolved]
  - Nausea [Not Recovered/Not Resolved]
  - Fatigue [Not Recovered/Not Resolved]
  - Headache [Unknown]
  - Back pain [Unknown]
  - Diarrhoea [Recovered/Resolved]
  - Abdominal pain [Unknown]
  - Product use issue [Unknown]

NARRATIVE: CASE EVENT DATE: 20220101
